FAERS Safety Report 11379871 (Version 3)
Quarter: 2015Q3

REPORT INFORMATION
  Report Type: Spontaneous
  Country: US (occurrence: US)
  Receive Date: 20150814
  Receipt Date: 20150928
  Transmission Date: 20151125
  Serious: No
  Sender: FDA-Public Use
  Company Number: US-ASTRAZENECA-2015SE76241

PATIENT
  Age: 12948 Day
  Sex: Female
  Weight: 99.8 kg

DRUGS (5)
  1. ALLEGRA [Concomitant]
     Active Substance: FEXOFENADINE HYDROCHLORIDE
     Indication: HYPERSENSITIVITY
     Dosage: DAILY
     Dates: start: 2010
  2. FLONASE [Concomitant]
     Active Substance: FLUTICASONE PROPIONATE
     Indication: SINUS DISORDER
     Dosage: TWO TIMES A DAY
     Route: 045
  3. PRENATAL VITAMIN [Concomitant]
     Active Substance: VITAMINS
     Indication: SUPPLEMENTATION THERAPY
     Dosage: DAILY
  4. PULMICORT FLEXHALER [Suspect]
     Active Substance: BUDESONIDE
     Indication: ASTHMA
     Route: 055
     Dates: start: 201507
  5. ALBUTEROL. [Concomitant]
     Active Substance: ALBUTEROL
     Indication: ASTHMA
     Dosage: AS REQUIRED
     Route: 055

REACTIONS (7)
  - Circumstance or information capable of leading to medication error [Unknown]
  - Exposure during pregnancy [Unknown]
  - Chest discomfort [Unknown]
  - Device failure [Unknown]
  - Dyspnoea [Unknown]
  - Drug ineffective [Unknown]
  - Wheezing [Unknown]

NARRATIVE: CASE EVENT DATE: 20150801
